FAERS Safety Report 7629628-2 (Version None)
Quarter: 2011Q3

REPORT INFORMATION
  Report Type: 
  Country: None (occurrence: None)
  Receive Date: 20110701
  Receipt Date: 20110311
  Transmission Date: 20111222
  Serious: Yes (Other)
  Sender: FDA-Public Use
  Company Number: 7047828

PATIENT
  Age: 52 Year
  Sex: Female

DRUGS (6)
  1. ELAVIL [Concomitant]
  2. LEXAPRO [Concomitant]
  3. BACLOFEN [Concomitant]
  4. LISINOPRIL [Concomitant]
  5. REBIF [Suspect]
     Indication: PRODUCT USED FOR UNKNOWN INDICATION
     Dosage: 44 MCG, 3 IN 1 WK, SUBCUTANEOUS
     Route: 058
     Dates: start: 20101202
  6. NEURONTIN [Concomitant]

REACTIONS (5)
  - MALAISE [None]
  - TEARFULNESS [None]
  - SUICIDAL IDEATION [None]
  - LARYNGITIS [None]
  - FATIGUE [None]
